FAERS Safety Report 5822823-4 (Version None)
Quarter: 2008Q3

REPORT INFORMATION
  Report Type: 
  Country: None (occurrence: None)
  Receive Date: 20080722
  Receipt Date: 20080714
  Transmission Date: 20090109
  Serious: Yes (Death, Life-Threatening, Hospitalization)
  Sender: FDA-Public Use
  Company Number: 002377

PATIENT
  Age: 46 Year
  Sex: Male

DRUGS (8)
  1. BUSULFEX [Suspect]
     Indication: STEM CELL TRANSPLANT
     Dosage: 27 ML, INTRAVENOUS, 36 ML DAILY DOSE; INTRAVENOUS, 9 ML, DAILY DOSE; INTRAVENOUS
     Route: 042
     Dates: start: 20070624, end: 20070624
  2. BUSULFEX [Suspect]
     Indication: STEM CELL TRANSPLANT
     Dosage: 27 ML, INTRAVENOUS, 36 ML DAILY DOSE; INTRAVENOUS, 9 ML, DAILY DOSE; INTRAVENOUS
     Route: 042
     Dates: start: 20070625, end: 20070625
  3. BUSULFEX [Suspect]
     Indication: STEM CELL TRANSPLANT
     Dosage: 27 ML, INTRAVENOUS, 36 ML DAILY DOSE; INTRAVENOUS, 9 ML, DAILY DOSE; INTRAVENOUS
     Route: 042
     Dates: start: 20070626, end: 20070626
  4. FLUDARABINE PHOSPHATE [Concomitant]
  5. VALPROATE SODIUM [Concomitant]
  6. LENOGRASTIM (LENOGRASTIM) [Concomitant]
  7. TACROLIMUS [Concomitant]
  8. CYTARABINE [Concomitant]

REACTIONS (9)
  - ACUTE MYELOID LEUKAEMIA RECURRENT [None]
  - ANOREXIA [None]
  - CONVULSION [None]
  - DIARRHOEA [None]
  - GRAFT VERSUS HOST DISEASE [None]
  - MALAISE [None]
  - NAUSEA [None]
  - STAPHYLOCOCCAL SEPSIS [None]
  - STOMATITIS [None]
